FAERS Safety Report 4743970-4 (Version None)
Quarter: 2005Q3

REPORT INFORMATION
  Report Type: 
  Country: None (occurrence: None)
  Receive Date: 20050809
  Receipt Date: 20050801
  Transmission Date: 20060218
  Serious: Yes (Life-Threatening)
  Sender: FDA-Public Use
  Company Number: 2005-130983-NL

PATIENT
  Age: 45 Year
  Sex: Male

DRUGS (3)
  1. VECURONIUM BROMIDE [Suspect]
     Indication: ANAESTHESIA
     Dates: start: 20021009, end: 20021010
  2. ISOFLURANE [Suspect]
     Indication: ANAESTHESIA
     Dosage: RESPIRATORY (INHALATION)
     Route: 055
     Dates: start: 20021009, end: 20021010
  3. FENTANYL [Suspect]
     Indication: ANAESTHESIA
     Dosage: INTRAVENOUS (NOS)
     Route: 042
     Dates: start: 20021009, end: 20021010

REACTIONS (18)
  - ACIDOSIS [None]
  - ANURIA [None]
  - BLOOD CREATINE PHOSPHOKINASE INCREASED [None]
  - CARBON DIOXIDE INCREASED [None]
  - COMA [None]
  - DYSKINESIA [None]
  - HAEMODYNAMIC INSTABILITY [None]
  - HEPATIC LESION [None]
  - HEPATIC NECROSIS [None]
  - HEPATIC STEATOSIS [None]
  - HYPERTHERMIA MALIGNANT [None]
  - HYPOXIA [None]
  - MULTI-ORGAN FAILURE [None]
  - MUSCLE ENZYME INCREASED [None]
  - MYOCARDIAL INFARCTION [None]
  - RENAL EMBOLISM [None]
  - SHOCK [None]
  - SINUS TACHYCARDIA [None]
